FAERS Safety Report 5002380-5 (Version None)
Quarter: 2006Q2

REPORT INFORMATION
  Report Type: 
  Country: None (occurrence: None)
  Receive Date: 20060512
  Receipt Date: 20060428
  Transmission Date: 20061013
  Serious: Yes (Hospitalization, Other)
  Sender: FDA-Public Use
  Company Number: DE200604004594

PATIENT
  Age: 77 Year
  Sex: Male

DRUGS (7)
  1. CYMBALTA [Suspect]
     Indication: DIABETIC NEUROPATHY
     Dosage: 60 MG, EACH EVENING, ORAL
     Route: 048
     Dates: start: 20060217, end: 20060405
  2. METFORMIN [Concomitant]
  3. PLAVIX [Concomitant]
  4. NEBIVOLOL HCL [Concomitant]
  5. INSULIN [Concomitant]
  6. ATORVASTATIN CALCIUM [Concomitant]
  7. BLOPRESS (CANDESARTAN CILEXETIL) [Concomitant]

REACTIONS (3)
  - BENIGN PROSTATIC HYPERPLASIA [None]
  - CATHETER RELATED COMPLICATION [None]
  - URINARY RETENTION [None]
